FAERS Safety Report 10207712 (Version 1)
Quarter: 2014Q2

REPORT INFORMATION
  Report Type: Spontaneous
  Country: US (occurrence: US)
  Receive Date: 20140530
  Receipt Date: 20140530
  Transmission Date: 20141212
  Serious: No
  Sender: FDA-Public Use
  Company Number: US-GLAXOSMITHKLINE-A1055988A

PATIENT
  Age: 56 Year
  Sex: Male

DRUGS (3)
  1. VENTOLIN [Suspect]
     Indication: ASTHMA
     Route: 055
  2. CETIRIZINE HCL [Suspect]
     Route: 048
  3. THEOPHYLLINE [Concomitant]

REACTIONS (6)
  - Dyspnoea [Unknown]
  - Dyspnoea [Unknown]
  - Respiratory tract congestion [Unknown]
  - Rhinorrhoea [Unknown]
  - Productive cough [Unknown]
  - Gout [Unknown]
